FAERS Safety Report 8413479-5 (Version None)
Quarter: 2012Q2

REPORT INFORMATION
  Report Type: 
  Country: None (occurrence: None)
  Receive Date: 20120605
  Receipt Date: 20120530
  Transmission Date: 20120825
  Serious: Yes (Hospitalization)
  Sender: FDA-Public Use
  Company Number: FR-ROCHE-1071513

PATIENT
  Sex: Male

DRUGS (11)
  1. MABTHERA [Suspect]
     Dosage: 7040 MAINTENANCE
     Route: 042
     Dates: start: 20101116, end: 20120401
  2. METHYLPREDNISOLONE [Suspect]
     Route: 042
     Dates: start: 20100506, end: 20100901
  3. METHYLPREDNISOLONE [Suspect]
     Route: 042
     Dates: start: 20101116, end: 20120401
  4. DOXORUBICIN HCL [Suspect]
     Indication: LYMPHOMA
     Route: 042
     Dates: start: 20100506, end: 20100901
  5. PREDNISOLONE [Suspect]
     Indication: LYMPHOMA
     Route: 048
     Dates: start: 20100507, end: 20100905
  6. MABTHERA [Suspect]
     Indication: LYMPHOMA
     Route: 042
     Dates: start: 20080425, end: 20080516
  7. CYCLOPHOSPHAMIDE [Suspect]
     Route: 048
     Dates: start: 20101116, end: 20120401
  8. METHYLPREDNISOLONE [Suspect]
     Indication: PREMEDICATION
     Route: 042
     Dates: start: 20080425, end: 20080516
  9. MABTHERA [Suspect]
     Route: 042
     Dates: start: 20100506, end: 20100901
  10. VINCRISTINE SULFATE [Suspect]
     Indication: LYMPHOMA
     Route: 042
     Dates: start: 20100506, end: 20100901
  11. CYCLOPHOSPHAMIDE [Suspect]
     Indication: LYMPHOMA
     Route: 048
     Dates: start: 20100506, end: 20100905

REACTIONS (1)
  - MALIGNANT MELANOMA [None]
